FAERS Safety Report 13045960 (Version 2)
Quarter: 2016Q4

REPORT INFORMATION
  Report Type: Spontaneous
  Country: BR (occurrence: BR)
  Receive Date: 20161220
  Receipt Date: 20161227
  Transmission Date: 20170207
  Serious: No
  Sender: FDA-Public Use
  Company Number: BR-PFIZER INC-2016579839

PATIENT
  Age: 63 Year
  Sex: Female

DRUGS (2)
  1. XALACOM [Suspect]
     Active Substance: LATANOPROST\TIMOLOL MALEATE
     Route: 047
  2. XALATAN [Suspect]
     Active Substance: LATANOPROST
     Indication: GLAUCOMA
     Dosage: 1 DROP, DAILY IN THE LEFT EYE
     Route: 047

REACTIONS (2)
  - Wrong drug administered [Unknown]
  - Product name confusion [Unknown]
